FAERS Safety Report 8244521-2 (Version None)
Quarter: 2012Q1

REPORT INFORMATION
  Report Type: 
  Country: None (occurrence: None)
  Receive Date: 20120329
  Receipt Date: 20120327
  Transmission Date: 20120608
  Serious: No
  Sender: FDA-Public Use
  Company Number: US-B.I. PHARMACEUTICALS,INC./RIDGEFIELD-2012-BP-05828BP

PATIENT
  Age: 80 Year
  Sex: Female

DRUGS (2)
  1. BLOOD PRESSURE MED [Concomitant]
  2. TRADJENTA [Suspect]
     Indication: TYPE 2 DIABETES MELLITUS

REACTIONS (3)
  - ABDOMINAL PAIN UPPER [None]
  - DIZZINESS [None]
  - HYPERGLYCAEMIA [None]
